FAERS Safety Report 6463683-0 (Version None)
Quarter: 2009Q4

REPORT INFORMATION
  Report Type: 
  Country: None (occurrence: None)
  Receive Date: 20091201
  Receipt Date: 20091125
  Transmission Date: 20100525
  Serious: Yes (Death)
  Sender: FDA-Public Use
  Company Number: PHEH2009US16832

PATIENT
  Sex: Female

DRUGS (2)
  1. EXJADE [Suspect]
     Indication: LYMPHOPROLIFERATIVE DISORDER
     Dosage: 1000 MG, QD
     Route: 048
  2. ANTINEOPLASTIC AGENTS [Concomitant]

REACTIONS (1)
  - RESPIRATORY ARREST [None]
